FAERS Safety Report 5709871-X (Version None)
Quarter: 2008Q2

REPORT INFORMATION
  Report Type: 
  Country: None (occurrence: None)
  Receive Date: 20080418
  Receipt Date: 20070131
  Transmission Date: 20081010
  Serious: No
  Sender: FDA-Public Use
  Company Number: US-ASTRAZENECA-2007UW01904

PATIENT
  Age: 76 Year
  Sex: Female
  Weight: 115.7 kg

DRUGS (5)
  1. TOPROL-XL [Suspect]
     Indication: HYPERTENSION
     Route: 048
     Dates: start: 20020101
  2. MAXZIDE [Concomitant]
     Indication: HYPERTENSION
  3. PEPCID [Concomitant]
     Indication: HIATUS HERNIA
  4. OMEGA 3 [Concomitant]
     Indication: BLOOD CHOLESTEROL
  5. ASPIRIN [Concomitant]

REACTIONS (1)
  - ALOPECIA [None]
